FAERS Safety Report 8026066-8 (Version None)
Quarter: 2012Q1

REPORT INFORMATION
  Report Type: 
  Country: None (occurrence: None)
  Receive Date: 20120105
  Receipt Date: 20110727
  Transmission Date: 20120608
  Serious: No
  Sender: FDA-Public Use
  Company Number: US-ABBOTT-11P-163-0842819-00

PATIENT
  Sex: Female

DRUGS (3)
  1. SYNTHROID [Suspect]
     Indication: HYPOTHYROIDISM
     Route: 048
  2. PREMPRO [Concomitant]
     Indication: MENOPAUSE
     Dosage: 0.3/1.5
  3. CELEBREX [Concomitant]
     Indication: ARTHRITIS

REACTIONS (3)
  - PRODUCT LOT NUMBER ISSUE [None]
  - PRODUCT PACKAGING ISSUE [None]
  - BLOOD THYROID STIMULATING HORMONE DECREASED [None]
